FAERS Safety Report 25045399 (Version 2)
Quarter: 2025Q1

REPORT INFORMATION
  Report Type: Report from Study
  Country: MX (occurrence: MX)
  Receive Date: 20250306
  Receipt Date: 20250311
  Transmission Date: 20250409
  Serious: Yes (Death, Hospitalization)
  Sender: NOVARTIS
  Company Number: MX-002147023-NVSC2025MX031541

PATIENT
  Age: 67 Year
  Sex: Female
  Weight: 53 kg

DRUGS (1)
  1. TASIGNA [Suspect]
     Active Substance: NILOTINIB
     Indication: Chronic myeloid leukaemia
     Dosage: 3 DOSAGE FORM, QD
     Route: 048
     Dates: start: 2013, end: 20250210

REACTIONS (12)
  - Lung disorder [Fatal]
  - Condition aggravated [Fatal]
  - Agitation [Fatal]
  - Thyroid disorder [Fatal]
  - Swelling [Fatal]
  - Pulmonary oedema [Fatal]
  - Chronic myeloid leukaemia [Fatal]
  - Malignant neoplasm progression [Fatal]
  - Dyspnoea [Fatal]
  - Myocardial infarction [Fatal]
  - Pneumonitis [Fatal]
  - Cardiac disorder [Unknown]

NARRATIVE: CASE EVENT DATE: 20241001
